FAERS Safety Report 21136994 (Version 1)
Quarter: 2022Q3

REPORT INFORMATION
  Report Type: Spontaneous
  Country: US (occurrence: None)
  Receive Date: 20220726
  Receipt Date: 20220726
  Transmission Date: 20221026
  Serious: Yes (Other)
  Sender: FDA-Public Use
  Company Number: None

PATIENT
  Sex: 0

DRUGS (2)
  1. AJOVY [Suspect]
     Active Substance: FREMANEZUMAB-VFRM
     Indication: Product used for unknown indication
  2. UNSPECIFIED INGREDIENT [Suspect]
     Active Substance: UNSPECIFIED INGREDIENT

REACTIONS (7)
  - Device malfunction [None]
  - Device difficult to use [None]
  - Device delivery system issue [None]
  - Inappropriate schedule of product administration [None]
  - Product communication issue [None]
  - Product complaint [None]
  - Device safety feature issue [None]

NARRATIVE: CASE EVENT DATE: 20220721
